APPROVED DRUG PRODUCT: CHLORZOXAZONE
Active Ingredient: CHLORZOXAZONE
Strength: 750MG
Dosage Form/Route: TABLET;ORAL
Application: A089853 | Product #003 | TE Code: AB
Applicant: AUROBINDO PHARMA LTD
Approved: Aug 17, 2023 | RLD: No | RS: No | Type: RX